FAERS Safety Report 11170110 (Version 1)
Quarter: 2015Q2

REPORT INFORMATION
  Report Type: Spontaneous
  Country: CN (occurrence: CN)
  Receive Date: 20150608
  Receipt Date: 20150608
  Transmission Date: 20150821
  Serious: Yes (Hospitalization, Other)
  Sender: FDA-Public Use
  Company Number: CN-ROCHE-1590156

PATIENT
  Age: 47 Year
  Sex: Male

DRUGS (5)
  1. PREDNISONE. [Suspect]
     Active Substance: PREDNISONE
     Indication: DIFFUSE LARGE B-CELL LYMPHOMA
     Route: 065
  2. VINCRISTINE [Suspect]
     Active Substance: VINCRISTINE
     Indication: DIFFUSE LARGE B-CELL LYMPHOMA
     Route: 065
  3. RITUXIMAB [Suspect]
     Active Substance: RITUXIMAB
     Indication: DIFFUSE LARGE B-CELL LYMPHOMA
     Route: 065
  4. CYCLOPHOSPHAMIDE. [Suspect]
     Active Substance: CYCLOPHOSPHAMIDE
     Indication: DIFFUSE LARGE B-CELL LYMPHOMA
     Route: 065
  5. DOXORUBICIN [Suspect]
     Active Substance: DOXORUBICIN
     Indication: DIFFUSE LARGE B-CELL LYMPHOMA
     Route: 065

REACTIONS (4)
  - Interstitial lung disease [Recovered/Resolved]
  - Respiratory failure [Recovered/Resolved]
  - Bone marrow failure [Recovering/Resolving]
  - Pyrexia [Recovered/Resolved]

NARRATIVE: CASE EVENT DATE: 200906
